FAERS Safety Report 6550553-2 (Version None)
Quarter: 2010Q1

REPORT INFORMATION
  Report Type: 
  Country: None (occurrence: None)
  Receive Date: 20100122
  Receipt Date: 20100122
  Transmission Date: 20100710
  Serious: Yes (Other)
  Sender: FDA-Public Use
  Company Number: None

PATIENT
  Age: 27 Year
  Sex: Female
  Weight: 144.6975 kg

DRUGS (2)
  1. MOTRIN [Suspect]
     Indication: ARTHRALGIA
     Dosage: 200MG 1-2 CAPS 2-3 X DAY PO 1+ YEARS
     Route: 048
     Dates: start: 20081109, end: 20090111
  2. MOTRIN [Suspect]
     Indication: OSTEOPOROSIS
     Dosage: 200MG 1-2 CAPS 2-3 X DAY PO 1+ YEARS
     Route: 048
     Dates: start: 20081109, end: 20090111

REACTIONS (9)
  - ABDOMINAL PAIN UPPER [None]
  - DIARRHOEA [None]
  - INJURY [None]
  - MALAISE [None]
  - MYCOTIC ALLERGY [None]
  - NAUSEA [None]
  - PRODUCT QUALITY ISSUE [None]
  - SINUSITIS [None]
  - UNEVALUABLE EVENT [None]
